FAERS Safety Report 5293071-4 (Version None)
Quarter: 2007Q2

REPORT INFORMATION
  Report Type: 
  Country: None (occurrence: None)
  Receive Date: 20070404
  Receipt Date: 20070330
  Transmission Date: 20071010
  Serious: Yes (Life-Threatening)
  Sender: FDA-Public Use
  Company Number: 2007-152550-NL

PATIENT
  Age: 43 Year
  Sex: Female

DRUGS (6)
  1. ROCURONIUM BROMIDE [Suspect]
     Indication: ANAESTHESIA
     Dosage: 4 MG ONCE/36 MG ONCE
     Route: 042
     Dates: start: 20060526, end: 20060526
  2. ROCURONIUM BROMIDE [Suspect]
     Indication: ANAESTHESIA
     Dosage: 4 MG ONCE/36 MG ONCE
     Route: 042
     Dates: start: 20060526, end: 20060526
  3. PROPOFOL [Concomitant]
  4. MIDAZOLAM HCL [Concomitant]
  5. FENTANYL [Concomitant]
  6. LEVOTHYROXINE SODIUM [Concomitant]

REACTIONS (6)
  - CYANOSIS [None]
  - EYELID OEDEMA [None]
  - HYPOTENSION [None]
  - RASH ERYTHEMATOUS [None]
  - TONGUE OEDEMA [None]
  - URTICARIA [None]
